FAERS Safety Report 4652746-8 (Version None)
Quarter: 2005Q2

REPORT INFORMATION
  Report Type: 
  Country: None (occurrence: None)
  Receive Date: 20050503
  Receipt Date: 20050322
  Transmission Date: 20051028
  Serious: No
  Sender: FDA-Public Use
  Company Number: 2005S1001473

PATIENT
  Age: 58 Year
  Sex: Female
  Weight: 65.7716 kg

DRUGS (8)
  1. FENTANYL [Suspect]
     Indication: BACK PAIN
     Dosage: 25 MCG/HR; Q3D; TDER
     Route: 062
     Dates: start: 20050309
  2. FENTANYL [Suspect]
     Indication: NECK PAIN
     Dosage: 25 MCG/HR; Q3D; TDER
     Route: 062
     Dates: start: 20050309
  3. PROMETHAZINE [Concomitant]
  4. CYCLOBENZAPRINE HYDROCHLORIDE [Concomitant]
  5. OXYCODONE HCL [Concomitant]
  6. TRAMADOL HCL [Concomitant]
  7. LIDOCAINE [Concomitant]
  8. TIAGABINE HYDROCHLORIDE [Concomitant]

REACTIONS (1)
  - DRUG INEFFECTIVE [None]
